FAERS Safety Report 8314121 (Version 2)
Quarter: 2013Q4

REPORT INFORMATION
  Report Type: Spontaneous
  Country: US (occurrence: US)
  Receive Date: 20111228
  Receipt Date: 20131101
  Transmission Date: 20140711
  Serious: Yes (Death)
  Sender: FDA-Public Use
  Company Number: US-PFIZER INC-2011309535

PATIENT
  Age: 44 Year
  Sex: Female

DRUGS (5)
  1. GABAPENTIN [Suspect]
     Dosage: UNK
     Route: 048
  2. ACETAMINOPHEN\HYDROCODONE [Suspect]
     Route: 048
  3. QUETIAPINE [Suspect]
     Dosage: UNK
     Route: 048
  4. FLUOXETINE [Suspect]
     Dosage: UNK
     Route: 048
  5. ETHANOL [Suspect]
     Dosage: UNK
     Route: 048

REACTIONS (3)
  - Drug abuse [Fatal]
  - Cardiac arrest [Fatal]
  - Respiratory arrest [Fatal]
